FAERS Safety Report 7051604-1 (Version None)
Quarter: 2010Q4

REPORT INFORMATION
  Report Type: 
  Country: None (occurrence: None)
  Receive Date: 20101019
  Receipt Date: 20101006
  Transmission Date: 20110411
  Serious: Yes (Hospitalization)
  Sender: FDA-Public Use
  Company Number: FR-ROCHE-731724

PATIENT
  Sex: Male

DRUGS (2)
  1. MYCOPHENOLATE MOFETIL [Suspect]
     Dosage: PERMANANTLY DISCONTINUED.
     Route: 048
     Dates: start: 20100514, end: 20101001
  2. CERTICAN [Suspect]
     Route: 048
     Dates: start: 20100701

REACTIONS (2)
  - BLOOD CREATININE INCREASED [None]
  - TRANSPLANT REJECTION [None]
